FAERS Safety Report 8593434-5 (Version None)
Quarter: 2012Q3

REPORT INFORMATION
  Report Type: 
  Country: None (occurrence: None)
  Receive Date: 20120814
  Receipt Date: 20120803
  Transmission Date: 20120928
  Serious: Yes (Life-Threatening, Hospitalization)
  Sender: FDA-Public Use
  Company Number: JP-CELGENEUS-087-CCAZA-11093106

PATIENT
  Sex: Male
  Weight: 62 kg

DRUGS (10)
  1. VIDAZA [Suspect]
     Dosage: 75 MILLIGRAM/SQ. METER
     Route: 058
     Dates: start: 20110808, end: 20110812
  2. GARENOXACIN MESYLATE [Concomitant]
     Dosage: 400 MILLIGRAM
     Route: 048
  3. VIDAZA [Suspect]
     Dosage: 75 MILLIGRAM/SQ. METER
     Route: 058
     Dates: start: 20120319, end: 20120323
  4. MAGMITT [Concomitant]
     Dosage: 330 MILLIGRAM
     Route: 065
     Dates: start: 20110705
  5. RBC TRANSFUSION [Concomitant]
     Route: 065
  6. VIDAZA [Suspect]
     Indication: MYELODYSPLASTIC SYNDROME
     Dosage: 75 MILLIGRAM/SQ. METER
     Route: 058
     Dates: start: 20110711, end: 20110715
  7. ARMODAFINIL [Concomitant]
     Dosage: 200 MILLIGRAM
     Route: 048
  8. RAMELTEON [Concomitant]
     Dosage: .1 MILLIGRAM
     Route: 048
     Dates: start: 20110711, end: 20110715
  9. VIDAZA [Suspect]
     Dosage: 75 MILLIGRAM/SQ. METER
     Route: 058
     Dates: start: 20120419, end: 20120423
  10. VIDAZA [Suspect]
     Dosage: 75 MILLIGRAM/SQ. METER
     Route: 058
     Dates: start: 20120514, end: 20120518

REACTIONS (1)
  - SEPSIS [None]
